FAERS Safety Report 7187430-2 (Version None)
Quarter: 2010Q4

REPORT INFORMATION
  Report Type: 
  Country: None (occurrence: None)
  Receive Date: 20101222
  Receipt Date: 20100719
  Transmission Date: 20110411
  Serious: No
  Sender: FDA-Public Use
  Company Number: US-AMGEN-KDL425340

PATIENT

DRUGS (11)
  1. ENBREL [Suspect]
     Indication: PRODUCT USED FOR UNKNOWN INDICATION
     Dosage: 50 MG, QWK
     Route: 058
  2. PANTOPRAZOLE SODIUM [Concomitant]
     Dosage: 20 MG, UNK
  3. HYDROXYCHLOROQUINE SULFATE [Concomitant]
     Dosage: 200 MG, UNK
  4. PREDNISONE [Concomitant]
     Dosage: 1 MG, UNK
  5. FOLIC ACID [Concomitant]
     Dosage: 1 MG, UNK
  6. HYDROCHLOROTHIAZIDE [Concomitant]
     Dosage: 12.5 MG, UNK
  7. ESTRADIOL [Concomitant]
     Dosage: 1 MG, UNK
  8. MELOXICAM [Concomitant]
     Dosage: 15 MG, UNK
  9. POTASSIUM CHLORATE [Concomitant]
     Dosage: 10 MEQ, UNK
  10. CEVIMELINE HYDROCHLORIDE [Concomitant]
     Dosage: 30 MG, UNK
  11. DEXTROPROPOXYPHENE NAPSILATE W/ ACETAMINOPHEN [Concomitant]
     Dosage: UNK UNK, UNK

REACTIONS (1)
  - LOCALISED INFECTION [None]
